FAERS Safety Report 16491277 (Version 5)
Quarter: 2020Q3

REPORT INFORMATION
  Report Type: Spontaneous
  Country: BR (occurrence: BR)
  Receive Date: 20190628
  Receipt Date: 20200715
  Transmission Date: 20201102
  Serious: Yes (Other)
  Sender: FDA-Public Use
  Company Number: BR-GLAXOSMITHKLINE-BR2019GSK070012

PATIENT
  Sex: Female
  Weight: 60 kg

DRUGS (6)
  1. AEROLIN [Suspect]
     Active Substance: ALBUTEROL
     Indication: ASTHMA
     Dosage: 4 PUFF(S), PRN
  2. ALENIA (BUDESONIDE\FORMOTEROL FUMARATE) [Suspect]
     Active Substance: BUDESONIDE\FORMOTEROL FUMARATE
     Indication: ASTHMA
     Dosage: UNK UNK, TID
  3. NUCALA [Suspect]
     Active Substance: MEPOLIZUMAB
     Indication: ASTHMA
     Dosage: 100 MG, UNK
     Route: 042
     Dates: start: 20190111
  4. CLENIL [Suspect]
     Active Substance: BECLOMETHASONE DIPROPIONATE
     Indication: ASTHMA
     Dosage: 2 PUFF(S), TID
  5. PANTOPRAZOLE [Suspect]
     Active Substance: PANTOPRAZOLE
     Indication: GASTRIC ULCER
     Dosage: UNK
  6. SPIRIVA RESPIMAT [Suspect]
     Active Substance: TIOTROPIUM BROMIDE
     Indication: ASTHMA
     Dosage: 2 PUFF(S), QD

REACTIONS (11)
  - Asthma [Unknown]
  - Pneumonia [Recovered/Resolved]
  - Abdominal pain upper [Unknown]
  - Social problem [Unknown]
  - Product dose omission issue [Unknown]
  - Pleural thickening [Unknown]
  - Pulmonary oedema [Unknown]
  - Fatigue [Unknown]
  - Dyspnoea [Unknown]
  - Bronchospasm [Unknown]
  - Drug ineffective [Unknown]
